FAERS Safety Report 25842216 (Version 1)
Quarter: 2025Q3

REPORT INFORMATION
  Report Type: Spontaneous
  Country: US (occurrence: US)
  Receive Date: 20250924
  Receipt Date: 20250924
  Transmission Date: 20251021
  Serious: Yes (Hospitalization, Other)
  Sender: PHARMOBEDIENT CONSULTING, LLC
  Company Number: US-Pharmobedient-000258

PATIENT
  Age: 17 Year
  Sex: Female
  Weight: 54 kg

DRUGS (2)
  1. GEMCITABINE [Suspect]
     Active Substance: GEMCITABINE
     Indication: Angiosarcoma
     Route: 042
  2. PACLITAXEL [Suspect]
     Active Substance: PACLITAXEL
     Indication: Angiosarcoma
     Route: 042

REACTIONS (7)
  - Epistaxis [Unknown]
  - Vaginal haemorrhage [Unknown]
  - Fatigue [Unknown]
  - Dyspnoea [Unknown]
  - Respiratory failure [Unknown]
  - Pneumonia [Unknown]
  - Anaemia [Unknown]
